FAERS Safety Report 19895081 (Version 1)
Quarter: 2021Q3

REPORT INFORMATION
  Report Type: Spontaneous
  Country: JP (occurrence: JP)
  Receive Date: 20210929
  Receipt Date: 20210929
  Transmission Date: 20211014
  Serious: Yes (Other)
  Sender: FDA-Public Use
  Company Number: JP-ORGANON-O2109JPN002293

PATIENT

DRUGS (1)
  1. REFLEX [Suspect]
     Active Substance: MIRTAZAPINE
     Dosage: UNK

REACTIONS (1)
  - Sinus node dysfunction [Unknown]
